FAERS Safety Report 7310763-3 (Version None)
Quarter: 2011Q1

REPORT INFORMATION
  Report Type: 
  Country: None (occurrence: None)
  Receive Date: 20110224
  Receipt Date: 20110209
  Transmission Date: 20110831
  Serious: No
  Sender: FDA-Public Use
  Company Number: US-PFIZER INC-US-WYE-H16258210

PATIENT
  Sex: Male
  Weight: 79.4 kg

DRUGS (10)
  1. XANAX [Suspect]
     Indication: SLEEP DISORDER
     Dosage: UNKNOWN
     Route: 065
  2. ACETYLSALICYLIC ACID [Concomitant]
  3. TRICOR [Concomitant]
  4. PANTOPRAZOLE [Concomitant]
  5. CARVEDILOL [Concomitant]
  6. PRISTIQ [Suspect]
     Indication: DEPRESSION
     Dosage: 50.0 MG, 1X/DAY
     Route: 065
     Dates: start: 20100610, end: 20100714
  7. PRISTIQ [Suspect]
     Dosage: 100.0 MG, 1X/DAY
     Route: 065
     Dates: start: 20100715
  8. RAMIPRIL [Concomitant]
  9. LIPITOR [Concomitant]
  10. PLAVIX [Concomitant]

REACTIONS (5)
  - ASTHENIA [None]
  - INSOMNIA [None]
  - DRUG EFFECT DECREASED [None]
  - NAUSEA [None]
  - HEADACHE [None]
